FAERS Safety Report 20127959 (Version 1)
Quarter: 2021Q4

REPORT INFORMATION
  Report Type: Spontaneous
  Country: US (occurrence: None)
  Receive Date: 20211129
  Receipt Date: 20211129
  Transmission Date: 20220303
  Serious: No
  Sender: FDA-Public Use
  Company Number: US-ROCHE-2868628

PATIENT
  Sex: Female

DRUGS (4)
  1. HERCEPTIN [Suspect]
     Active Substance: TRASTUZUMAB
     Indication: HER2 positive breast cancer
     Route: 042
     Dates: start: 20210628
  2. PERJETA [Suspect]
     Active Substance: PERTUZUMAB
     Indication: HER2 positive breast cancer
     Route: 042
     Dates: start: 20210628
  3. DOCETAXEL [Concomitant]
     Active Substance: DOCETAXEL
     Indication: HER2 positive breast cancer
     Dates: start: 20210628
  4. CARBOPLATIN [Concomitant]
     Active Substance: CARBOPLATIN
     Indication: HER2 positive breast cancer
     Dates: start: 20210628

REACTIONS (2)
  - Pruritus [Not Recovered/Not Resolved]
  - Swelling [Unknown]

NARRATIVE: CASE EVENT DATE: 20210628
